FAERS Safety Report 7032136-3 (Version None)
Quarter: 2010Q4

REPORT INFORMATION
  Report Type: 
  Country: None (occurrence: None)
  Receive Date: 20101005
  Receipt Date: 20100922
  Transmission Date: 20110411
  Serious: Yes (Disabling, Other)
  Sender: FDA-Public Use
  Company Number: 2010P1001605

PATIENT
  Sex: Female

DRUGS (2)
  1. METOCLOPRAMIDE (NO PREF. NAME) [Suspect]
     Dates: start: 20010801, end: 20080201
  2. REGLAN (METOCLOPRAMIDE) (NO PREF. NAME) [Suspect]
     Dates: start: 20010801, end: 20080201

REACTIONS (9)
  - ACTIVITIES OF DAILY LIVING IMPAIRED [None]
  - ANXIETY [None]
  - ASTHENIA [None]
  - DYSKINESIA [None]
  - EMOTIONAL DISORDER [None]
  - EMOTIONAL DISTRESS [None]
  - INJURY [None]
  - PARKINSONISM [None]
  - TREMOR [None]
